FAERS Safety Report 17283632 (Version 1)
Quarter: 2020Q1

REPORT INFORMATION
  Report Type: Spontaneous
  Country: CN (occurrence: CN)
  Receive Date: 20200117
  Receipt Date: 20200117
  Transmission Date: 20200409
  Serious: Yes (Other)
  Sender: FDA-Public Use
  Company Number: CN-CHEPLA-C20200258_01

PATIENT
  Age: 27 Year
  Sex: Male

DRUGS (4)
  1. IMIPENEM-CILASTIN SODIUM [Suspect]
     Active Substance: CILASTATIN SODIUM\IMIPENEM
     Indication: INFECTION
  2. GANCICLOVIR. [Suspect]
     Active Substance: GANCICLOVIR
     Indication: INFECTION
  3. FOSCARNET [Suspect]
     Active Substance: FOSCARNET
  4. VORICONAZOLE. [Suspect]
     Active Substance: VORICONAZOLE
     Indication: INFECTION

REACTIONS (3)
  - Drug resistance [Unknown]
  - Encephalitis cytomegalovirus [Recovered/Resolved]
  - Drug ineffective [Unknown]
